FAERS Safety Report 7433643-1 (Version None)
Quarter: 2011Q2

REPORT INFORMATION
  Report Type: 
  Country: None (occurrence: None)
  Receive Date: 20110422
  Receipt Date: 20110414
  Transmission Date: 20111010
  Serious: Yes (Other)
  Sender: FDA-Public Use
  Company Number: US-MERCK-1102USA01521

PATIENT
  Age: 81 Year
  Sex: Female

DRUGS (1)
  1. FOSAMAX [Suspect]
     Indication: OSTEOPOROSIS
     Route: 048

REACTIONS (10)
  - FEMUR FRACTURE [None]
  - HYPOTHYROIDISM [None]
  - CALCIUM DEFICIENCY [None]
  - BLOOD CHOLESTEROL INCREASED [None]
  - LOW TURNOVER OSTEOPATHY [None]
  - TIBIA FRACTURE [None]
  - VITAMIN D DEFICIENCY [None]
  - PATELLA FRACTURE [None]
  - FALL [None]
  - BREAST CANCER [None]
